FAERS Safety Report 21490907 (Version 3)
Quarter: 2023Q1

REPORT INFORMATION
  Report Type: Spontaneous
  Country: US (occurrence: US)
  Receive Date: 20221021
  Receipt Date: 20230118
  Transmission Date: 20230418
  Serious: No
  Sender: FDA-Public Use
  Company Number: US-BAUSCHBL-2022BNL001192

PATIENT
  Age: 83 Year
  Sex: Female

DRUGS (4)
  1. VYZULTA [Suspect]
     Active Substance: LATANOPROSTENE BUNOD
     Indication: Glaucoma
     Dosage: 1 GTT, QD. RIGHT EYE.
     Route: 047
     Dates: start: 20221010, end: 20221018
  2. DORZOLOMIDE HYDROCHLORIDE [Concomitant]
     Indication: Open angle glaucoma
     Dosage: 2 TIMES DAILY
     Route: 065
  3. ATORVASTATIN [Concomitant]
     Active Substance: ATORVASTATIN
     Indication: Product used for unknown indication
     Route: 065
  4. ASPIRIN [Concomitant]
     Active Substance: ASPIRIN
     Indication: Product used for unknown indication
     Route: 065

REACTIONS (12)
  - Instillation site pruritus [Not Recovered/Not Resolved]
  - Blepharospasm [Not Recovered/Not Resolved]
  - Oropharyngeal pain [Unknown]
  - Condition aggravated [Unknown]
  - Dry throat [Unknown]
  - Throat irritation [Unknown]
  - Instillation site inflammation [Unknown]
  - Haemoglobin decreased [Unknown]
  - Diplopia [Unknown]
  - Instillation site pain [Not Recovered/Not Resolved]
  - Vision blurred [Not Recovered/Not Resolved]
  - Instillation site erythema [Not Recovered/Not Resolved]

NARRATIVE: CASE EVENT DATE: 20221001
